FAERS Safety Report 7000125-0 (Version None)
Quarter: 2010Q3

REPORT INFORMATION
  Report Type: 
  Country: None (occurrence: None)
  Receive Date: 20100920
  Receipt Date: 20100223
  Transmission Date: 20110219
  Serious: No
  Sender: FDA-Public Use
  Company Number: US-ASTRAZENECA-2010SE07818

PATIENT
  Age: 58 Year
  Sex: Male
  Weight: 77.1 kg

DRUGS (5)
  1. SEROQUEL XR [Suspect]
     Indication: BIPOLAR DISORDER
     Route: 048
  2. SEROQUEL XR [Suspect]
     Route: 048
     Dates: start: 20050101
  3. ZOLOFT [Concomitant]
  4. WELLBUTRIN [Concomitant]
  5. CHOLESTERO MED [Concomitant]

REACTIONS (2)
  - DISTURBANCE IN ATTENTION [None]
  - HEADACHE [None]
